FAERS Safety Report 19856756 (Version 2)
Quarter: 2021Q4

REPORT INFORMATION
  Report Type: Spontaneous
  Country: US (occurrence: None)
  Receive Date: 20210920
  Receipt Date: 20211104
  Transmission Date: 20220304
  Serious: No
  Sender: FDA-Public Use
  Company Number: 2021A708926

PATIENT
  Sex: Male
  Weight: 102.5 kg

DRUGS (16)
  1. BYDUREON BCISE [Suspect]
     Active Substance: EXENATIDE
     Indication: Type 2 diabetes mellitus
     Route: 058
  2. ISOSORBIDE MONONITRATE [Concomitant]
     Active Substance: ISOSORBIDE MONONITRATE
  3. RANOLAZINE [Concomitant]
     Active Substance: RANOLAZINE
  4. LOSARTAN [Concomitant]
     Active Substance: LOSARTAN
  5. CARVEDILOL [Concomitant]
     Active Substance: CARVEDILOL
  6. FURESOMIDE [Concomitant]
  7. FENOFIBRATE [Concomitant]
     Active Substance: FENOFIBRATE
  8. METFORMIN [Concomitant]
     Active Substance: METFORMIN HYDROCHLORIDE
  9. GLIPIZIDE [Concomitant]
     Active Substance: GLIPIZIDE
  10. ELIPTO INCRUSE INHALER [Concomitant]
  11. CLOPIDOGREL [Concomitant]
     Active Substance: CLOPIDOGREL BISULFATE
  12. ATORVASTATIN [Concomitant]
     Active Substance: ATORVASTATIN
  13. AMIODARONE [Concomitant]
     Active Substance: AMIODARONE
  14. ASPIRIN [Concomitant]
     Active Substance: ASPIRIN
  15. VITAMIN B12 [Concomitant]
     Active Substance: CYANOCOBALAMIN
  16. VITAMINS [Concomitant]
     Active Substance: VITAMINS

REACTIONS (3)
  - Urticaria [Recovered/Resolved]
  - Incorrect dose administered [Not Recovered/Not Resolved]
  - Device leakage [Unknown]
